FAERS Safety Report 21082404 (Version 8)
Quarter: 2023Q2

REPORT INFORMATION
  Report Type: Report from Study
  Country: FR (occurrence: FR)
  Receive Date: 20220714
  Receipt Date: 20230608
  Transmission Date: 20230721
  Serious: Yes (Other)
  Sender: FDA-Public Use
  Company Number: FR-JNJFOC-20220710352

PATIENT
  Age: 78 Year
  Sex: Male
  Weight: 97 kg

DRUGS (8)
  1. APALUTAMIDE [Suspect]
     Active Substance: APALUTAMIDE
     Indication: Prostate cancer
     Dosage: 01-APR-2022: CYCLE 1 DAY 1?CUMULATIVE DOSE 18,720 MG
     Route: 048
     Dates: start: 20220401, end: 20220722
  2. RADIATION THERAPY [Suspect]
     Active Substance: RADIATION THERAPY
     Indication: Prostate cancer
     Dosage: UNIT: GRAY?DOSAGE: PROSTATE 2 IU EVERY DAY; PELVIS 1.7 IU EVERY DAY, BOOST 2.1 IU EVERY DAY?INTENSIT
     Route: 065
     Dates: start: 20220528, end: 20220617
  3. GONADORELIN [Concomitant]
     Active Substance: GONADORELIN
     Indication: Prostate cancer
     Dosage: 01-APR-2022: CYCLE 1 DAY 1, DOSE: 11.25 MG EVERY CYCLE, CUMULATIVE DOSE: 22.5 MG. DATE OF LAST ADMIN
     Route: 058
     Dates: start: 20220401, end: 20220401
  4. KARDEGIC [Concomitant]
     Active Substance: ASPIRIN DL-LYSINE
  5. CANDESARTAN CILEXETIL\HYDROCHLOROTHIAZIDE [Concomitant]
     Active Substance: CANDESARTAN CILEXETIL\HYDROCHLOROTHIAZIDE
     Dosage: 16/12.5 MG
  6. LERCANIDIPINE [Concomitant]
     Active Substance: LERCANIDIPINE
  7. ALLOPURINOL [Concomitant]
     Active Substance: ALLOPURINOL
  8. GLUCOPHAGE [Concomitant]
     Active Substance: METFORMIN HYDROCHLORIDE

REACTIONS (2)
  - Clostridium difficile infection [Recovered/Resolved]
  - Lichen planus [Recovered/Resolved]

NARRATIVE: CASE EVENT DATE: 20220619
